FAERS Safety Report 15752357 (Version 1)
Quarter: 2018Q4

REPORT INFORMATION
  Report Type: Spontaneous
  Country: US (occurrence: US)
  Receive Date: 20181221
  Receipt Date: 20181221
  Transmission Date: 20190205
  Serious: Yes (Other)
  Sender: FDA-Public Use
  Company Number: US-LPDUSPRD-20182378

PATIENT
  Age: 17 Year
  Sex: Female

DRUGS (1)
  1. ACETYLCYSTEINE SOLUTION, USP (014-10) [Suspect]
     Active Substance: ACETYLCYSTEINE
     Dosage: UNKNOWN
     Route: 065

REACTIONS (1)
  - Anaphylactic reaction [Unknown]
